FAERS Safety Report 5089005-8 (Version None)
Quarter: 2006Q3

REPORT INFORMATION
  Report Type: 
  Country: None (occurrence: None)
  Receive Date: 20060822
  Receipt Date: 20060814
  Transmission Date: 20061208
  Serious: Yes (Other)
  Sender: FDA-Public Use
  Company Number: 228743

PATIENT
  Sex: Female

DRUGS (5)
  1. AVASTIN [Suspect]
     Indication: COLORECTAL CANCER METASTATIC
  2. OXALIPLATIN [Concomitant]
  3. OXYGEN AT HOME (OXYGEN) [Concomitant]
  4. NEBULIZER TREATMENT (RESPIRATORY TREATMENTS AND DEVICES) [Concomitant]
  5. BENADRYL [Concomitant]

REACTIONS (3)
  - BRONCHIAL OBSTRUCTION [None]
  - COUGH [None]
  - PALLOR [None]
